FAERS Safety Report 8472887-7 (Version None)
Quarter: 2012Q2

REPORT INFORMATION
  Report Type: 
  Country: None (occurrence: None)
  Receive Date: 20120622
  Receipt Date: 20120622
  Transmission Date: 20120825
  Serious: Yes (Hospitalization)
  Sender: FDA-Public Use
  Company Number: None

PATIENT
  Sex: Female
  Weight: 87.9978 kg

DRUGS (2)
  1. CETUXIMAB 250MG/ MSQUARED [Suspect]
     Indication: TONGUE NEOPLASM MALIGNANT STAGE UNSPECIFIED
     Dosage: CETUXIMAB QW IV DRIP
     Route: 041
     Dates: start: 20120510, end: 20120601
  2. CISPLATIN [Suspect]
     Indication: TONGUE NEOPLASM MALIGNANT STAGE UNSPECIFIED
     Dosage: CISPLATIN QW IV
     Route: 041
     Dates: start: 20120515, end: 20120601

REACTIONS (4)
  - NAUSEA [None]
  - DIARRHOEA [None]
  - VOMITING [None]
  - DEHYDRATION [None]
